FAERS Safety Report 9227524 (Version 1)
Quarter: 2013Q2

REPORT INFORMATION
  Report Type: Spontaneous
  Country: FR (occurrence: None)
  Receive Date: 20130410
  Receipt Date: 20130410
  Transmission Date: 20140414
  Serious: Yes (Hospitalization)
  Sender: FDA-Public Use
  Company Number: 1656770

PATIENT
  Age: 41 Year
  Sex: Male

DRUGS (3)
  1. IRINOTECAN HYDROCHLORIDE [Suspect]
     Indication: OLIGODENDROGLIOMA
     Dosage: 250 MG MILLIGRAM(S), UNKNOWN, INTRAVENOUS (NOT OTHERWISE SPECIFIED)
     Route: 042
     Dates: start: 20121107, end: 20130125
  2. AVASTIN [Suspect]
     Indication: OLIGODENDROGLIOMA
     Dosage: 840 MG MILLIGRAM(S), UNKNOWN, INTRAVENOUS (NOT OTHERWISE SPECIFIED)
     Route: 042
     Dates: start: 20121121, end: 20130125
  3. (KEPPRA) [Concomitant]

REACTIONS (1)
  - Pulmonary embolism [None]
